FAERS Safety Report 17718725 (Version 2)
Quarter: 2020Q3

REPORT INFORMATION
  Report Type: Spontaneous
  Country: DE (occurrence: DE)
  Receive Date: 20200428
  Receipt Date: 20200807
  Transmission Date: 20201102
  Serious: Yes (Death, Other)
  Sender: FDA-Public Use
  Company Number: NVSC2020DE113353

PATIENT
  Age: 73 Year
  Sex: Female
  Weight: 76 kg

DRUGS (7)
  1. ZOPICLONE [Interacting]
     Active Substance: ZOPICLONE
     Indication: PRODUCT USED FOR UNKNOWN INDICATION
     Dosage: UNK
     Route: 065
  2. AMLODIPINE [Suspect]
     Active Substance: AMLODIPINE BESYLATE
     Indication: PRODUCT USED FOR UNKNOWN INDICATION
     Dosage: UNK
     Route: 065
  3. CANDESARTAN. [Interacting]
     Active Substance: CANDESARTAN
     Indication: MOBILITY DECREASED
     Dosage: UNK
     Route: 065
  4. MIRTAZAPINE. [Interacting]
     Active Substance: MIRTAZAPINE
     Indication: PRODUCT USED FOR UNKNOWN INDICATION
     Dosage: UNK
     Route: 065
  5. METOPROLOL. [Interacting]
     Active Substance: METOPROLOL
     Indication: PRODUCT USED FOR UNKNOWN INDICATION
     Dosage: UNK
     Route: 065
  6. FENTANYL. [Interacting]
     Active Substance: FENTANYL
     Indication: PRODUCT USED FOR UNKNOWN INDICATION
     Dosage: 50 UG/HR
     Route: 062
  7. MORPHINE [Interacting]
     Active Substance: MORPHINE
     Indication: MOBILITY DECREASED
     Dosage: FOR 20 YEARS
     Route: 065

REACTIONS (6)
  - Asphyxia [Fatal]
  - Pulmonary oedema [Fatal]
  - Toxicity to various agents [Fatal]
  - Drug interaction [Fatal]
  - Intentional product misuse [Fatal]
  - Urinary retention [Fatal]
